FAERS Safety Report 23045656 (Version 1)
Quarter: 2023Q4

REPORT INFORMATION
  Report Type: Spontaneous
  Country: DE (occurrence: DE)
  Receive Date: 20231009
  Receipt Date: 20231009
  Transmission Date: 20240109
  Serious: Yes (Hospitalization)
  Sender: FDA-Public Use
  Company Number: None

PATIENT
  Age: 22 Year
  Sex: Female
  Weight: 65 kg

DRUGS (1)
  1. KYLEENA [Suspect]
     Active Substance: LEVONORGESTREL
     Indication: Contraception
     Dosage: 17.5?G/DAY
     Route: 015
     Dates: start: 20211121, end: 20230705

REACTIONS (17)
  - Brain fog [Unknown]
  - Depression [Recovering/Resolving]
  - Abdominal pain lower [Recovered/Resolved]
  - Dermatophytosis [Recovered/Resolved]
  - Pyrexia [Recovered/Resolved]
  - Cystitis noninfective [Recovering/Resolving]
  - Nasopharyngitis [Recovered/Resolved]
  - Oligomenorrhoea [Recovered/Resolved]
  - Disturbance in attention [Recovering/Resolving]
  - Fatigue [Recovering/Resolving]
  - Nasopharyngitis [Recovered/Resolved]
  - Bedridden [Recovered/Resolved]
  - Acne [Recovered/Resolved]
  - Depressed mood [Recovering/Resolving]
  - Loss of libido [Recovered/Resolved]
  - Breast pain [Unknown]
  - Cough [Recovered/Resolved]

NARRATIVE: CASE EVENT DATE: 20211121
